FAERS Safety Report 9868328 (Version 1)
Quarter: 2014Q1

REPORT INFORMATION
  Report Type: Spontaneous
  Country: US (occurrence: US)
  Receive Date: 20140204
  Receipt Date: 20140204
  Transmission Date: 20141002
  Serious: Yes (Death, Hospitalization)
  Sender: FDA-Public Use
  Company Number: CHPA2014US001510

PATIENT
  Age: 34 Year
  Sex: Female

DRUGS (1)
  1. IBUPROFEN [Suspect]
     Route: 048

REACTIONS (15)
  - Completed suicide [Fatal]
  - Unresponsive to stimuli [Fatal]
  - Urinary incontinence [Fatal]
  - Blood bicarbonate decreased [Fatal]
  - Hypotension [Fatal]
  - Urine output decreased [Fatal]
  - Pupil fixed [Fatal]
  - ECG P wave inverted [Fatal]
  - Electrocardiogram ST segment depression [Fatal]
  - Blood pH decreased [Fatal]
  - Blood lactic acid increased [Fatal]
  - General physical health deterioration [Fatal]
  - Pulmonary oedema [Fatal]
  - Renal impairment [Fatal]
  - Toxicity to various agents [Fatal]
